FAERS Safety Report 22058271 (Version 1)
Quarter: 2023Q1

REPORT INFORMATION
  Report Type: Spontaneous
  Country: PT (occurrence: PT)
  Receive Date: 20230303
  Receipt Date: 20230303
  Transmission Date: 20230417
  Serious: Yes (Hospitalization, Disabling)
  Sender: FDA-Public Use
  Company Number: None

PATIENT
  Age: 11 Year
  Sex: Female
  Weight: 19 kg

DRUGS (1)
  1. NUTROPIN AQ [Suspect]
     Active Substance: SOMATROPIN
     Indication: Product used for unknown indication
     Dosage: 0.5MG ID, STRENGTH: 10 MG/2 ML
     Route: 030
     Dates: start: 20220829, end: 20221229

REACTIONS (1)
  - Pyloric stenosis [Unknown]

NARRATIVE: CASE EVENT DATE: 20221229
